FAERS Safety Report 23080272 (Version 9)
Quarter: 2025Q3

REPORT INFORMATION
  Report Type: Report from Study
  Country: EU (occurrence: EU)
  Receive Date: 20231018
  Receipt Date: 20250714
  Transmission Date: 20251020
  Serious: Yes (Other)
  Sender: PFIZER
  Company Number: EU-PFM-2023-05783

PATIENT
  Age: 78 Year
  Sex: Male
  Weight: 75 kg

DRUGS (16)
  1. ENCORAFENIB [Suspect]
     Active Substance: ENCORAFENIB
     Indication: Malignant melanoma
     Dosage: 450 MG, QD (1/DAY)
     Route: 048
     Dates: start: 20230627, end: 20240619
  2. ENCORAFENIB [Suspect]
     Active Substance: ENCORAFENIB
     Dosage: 450 MG, QD (1/DAY)
     Route: 048
     Dates: start: 20240704, end: 20250520
  3. BINIMETINIB [Suspect]
     Active Substance: BINIMETINIB
     Indication: Malignant melanoma
     Dosage: 45 MG, BID (2/DAY)
     Route: 048
     Dates: start: 20230627, end: 20240619
  4. BINIMETINIB [Suspect]
     Active Substance: BINIMETINIB
     Dosage: 45 MG, BID (2/DAY)
     Route: 048
     Dates: start: 20240704, end: 20250520
  5. PREDNICARBATE [Concomitant]
     Active Substance: PREDNICARBATE
     Route: 065
     Dates: start: 20230625, end: 202306
  6. MOMETASONE FUROATE [Concomitant]
     Active Substance: MOMETASONE FUROATE
     Route: 065
     Dates: start: 20230622, end: 20230624
  7. OXYGEN [Concomitant]
     Active Substance: OXYGEN
     Indication: Metastases to pleura
     Route: 065
     Dates: start: 20230622, end: 20230624
  8. TELMISARTAN [Concomitant]
     Active Substance: TELMISARTAN
     Route: 065
  9. TAMSULOSIN [Concomitant]
     Active Substance: TAMSULOSIN
     Route: 065
  10. AMLODIPINE [Concomitant]
     Active Substance: AMLODIPINE BESYLATE
     Route: 065
  11. LEVOTHYROXINE [Concomitant]
     Active Substance: LEVOTHYROXINE
     Route: 065
  12. KLISYRI [Concomitant]
     Active Substance: TIRBANIBULIN
     Indication: Actinic keratosis
     Route: 065
     Dates: start: 20230928, end: 20231228
  13. TOLAK [FLUOROURACIL] [Concomitant]
     Indication: Actinic keratosis
     Route: 065
     Dates: start: 20231127, end: 20231228
  14. MOMETASONE FUROATE [Concomitant]
     Active Substance: MOMETASONE FUROATE
     Indication: Eczema
     Route: 065
     Dates: start: 20240123, end: 202403
  15. FEXOFENADINE [Concomitant]
     Active Substance: FEXOFENADINE HYDROCHLORIDE
     Indication: Eczema
     Route: 065
     Dates: start: 20240123, end: 202403
  16. ELECTROLYTES NOS [Concomitant]
     Active Substance: ELECTROLYTES NOS
     Route: 065
     Dates: start: 20230625, end: 20230628

REACTIONS (6)
  - Second primary malignancy [Recovered/Resolved]
  - Basal cell carcinoma [Recovered/Resolved]
  - Hypophosphataemia [Not Recovered/Not Resolved]
  - Blood creatine phosphokinase increased [Recovered/Resolved]
  - Alanine aminotransferase increased [Recovered/Resolved]
  - Aspartate aminotransferase increased [Recovered/Resolved]

NARRATIVE: CASE EVENT DATE: 20230828
